FAERS Safety Report 7403076-2 (Version None)
Quarter: 2011Q1

REPORT INFORMATION
  Report Type: 
  Country: None (occurrence: None)
  Receive Date: 20110316
  Receipt Date: 20110303
  Transmission Date: 20110831
  Serious: Yes (Hospitalization)
  Sender: FDA-Public Use
  Company Number: WSDF_00758

PATIENT
  Sex: Female
  Weight: 112.7 kg

DRUGS (1)
  1. WINRHO SDF LIQUID [Suspect]
     Indication: IDIOPATHIC THROMBOCYTOPENIC PURPURA
     Dosage: (73.6 UG/'KG TOTAL INTRAVENOUS (NOT OTHERWISE SPECIFIED)
     Route: 042
     Dates: start: 20081007, end: 20081007

REACTIONS (5)
  - OVERDOSE [None]
  - BACK PAIN [None]
  - ARTHRALGIA [None]
  - CHILLS [None]
  - PYREXIA [None]
